FAERS Safety Report 11391049 (Version 1)
Quarter: 2015Q3

REPORT INFORMATION
  Report Type: Spontaneous
  Country: US (occurrence: US)
  Receive Date: 20150818
  Receipt Date: 20150818
  Transmission Date: 20151125
  Serious: Yes (Disabling)
  Sender: FDA-Public Use
  Company Number: PHEH2015US015621

PATIENT
  Age: 78 Year
  Sex: Female

DRUGS (1)
  1. SIGNIFOR [Suspect]
     Active Substance: PASIREOTIDE
     Indication: PITUITARY-DEPENDENT CUSHING^S SYNDROME
     Dosage: 0.6 UG, BID
     Route: 058
     Dates: start: 20150723, end: 20150810

REACTIONS (6)
  - Oedema [Unknown]
  - Pollakiuria [Unknown]
  - Hypoglycaemia [Unknown]
  - Hyperglycaemia [Unknown]
  - Atrial fibrillation [Unknown]
  - Diarrhoea [Recovering/Resolving]

NARRATIVE: CASE EVENT DATE: 20150810
